FAERS Safety Report 8921382 (Version 1)
Quarter: 2012Q4

REPORT INFORMATION
  Report Type: 
  Country: CO (occurrence: CO)
  Receive Date: 20121121
  Receipt Date: 20121121
  Transmission Date: 20130627
  Serious: Yes (Other)
  Sender: FDA-Public Use
  Company Number: CO-JNJFOC-20121108141

PATIENT
  Age: 15 Year
  Sex: Female

DRUGS (1)
  1. TOPAMAC [Suspect]
     Indication: MIGRAINE
     Route: 048
     Dates: start: 20120711, end: 20121022

REACTIONS (2)
  - Mental impairment [Unknown]
  - Adverse drug reaction [Unknown]
